FAERS Safety Report 9830795 (Version 2)
Quarter: 2014Q1

REPORT INFORMATION
  Report Type: Spontaneous
  Country: US (occurrence: US)
  Receive Date: 20140120
  Receipt Date: 20140120
  Transmission Date: 20141002
  Serious: No
  Sender: FDA-Public Use
  Company Number: US-009507513-1401USA004796

PATIENT
  Age: 24 Year
  Sex: Female
  Weight: 58.96 kg

DRUGS (1)
  1. IMPLANON [Suspect]
     Indication: CONTRACEPTION
     Dosage: INSERT LEFT ARM
     Route: 059
     Dates: start: 20110414

REACTIONS (3)
  - Muscle spasms [Unknown]
  - Device dislocation [Unknown]
  - Implant site pain [Unknown]
